FAERS Safety Report 8880549 (Version 2)
Quarter: 2012Q4

REPORT INFORMATION
  Report Type: 
  Country: US (occurrence: US)
  Receive Date: 20121101
  Receipt Date: 20121105
  Transmission Date: 20130627
  Serious: No
  Sender: FDA-Public Use
  Company Number: US-B.I. PHARMACEUTICALS,INC./RIDGEFIELD-2012-BP-26938BP

PATIENT
  Sex: Male
  Weight: 77 kg

DRUGS (4)
  1. PRADAXA [Suspect]
     Indication: ATRIAL FIBRILLATION
     Dosage: 300 mg
     Route: 048
     Dates: start: 201204
  2. ASPIRIN [Concomitant]
     Dosage: 81 mg
     Route: 048
  3. LISINOPRIL [Concomitant]
     Route: 048
  4. METOPROLOL [Concomitant]
     Route: 048

REACTIONS (6)
  - Oesophageal oedema [Not Recovered/Not Resolved]
  - Dyspepsia [Not Recovered/Not Resolved]
  - Odynophagia [Recovered/Resolved]
  - Oropharyngeal pain [Not Recovered/Not Resolved]
  - Chest pain [Recovered/Resolved]
  - Oropharyngeal pain [Not Recovered/Not Resolved]
